FAERS Safety Report 6379853-6 (Version None)
Quarter: 2009Q3

REPORT INFORMATION
  Report Type: 
  Country: None (occurrence: None)
  Receive Date: 20090928
  Receipt Date: 20090924
  Transmission Date: 20100115
  Serious: Yes (Death)
  Sender: FDA-Public Use
  Company Number: BE-ASTRAZENECA-2009AC01380

PATIENT
  Age: 47 Year
  Sex: Male

DRUGS (1)
  1. SEROQUEL [Suspect]
     Indication: DEPRESSION

REACTIONS (4)
  - COMPLETED SUICIDE [None]
  - DELIRIUM [None]
  - GUN SHOT WOUND [None]
  - INCORRECT DOSE ADMINISTERED [None]
